FAERS Safety Report 5107565-5 (Version None)
Quarter: 2006Q3

REPORT INFORMATION
  Report Type: 
  Country: None (occurrence: None)
  Receive Date: 20060913
  Receipt Date: 20060913
  Transmission Date: 20061208
  Serious: Yes (Life-Threatening, Hospitalization)
  Sender: FDA-Public Use
  Company Number: None

PATIENT
  Age: 58 Year
  Sex: Female
  Weight: 70.3075 kg

DRUGS (3)
  1. CISPLATIN [Suspect]
  2. ADRIAMYCIN PFS [Concomitant]
  3. TAXOL [Concomitant]

REACTIONS (4)
  - BLOOD ELECTROLYTES DECREASED [None]
  - CONVULSION [None]
  - JOINT DISLOCATION [None]
  - UPPER LIMB FRACTURE [None]
